FAERS Safety Report 21769500 (Version 3)
Quarter: 2023Q1

REPORT INFORMATION
  Report Type: Other
  Country: TW (occurrence: TW)
  Receive Date: 20221223
  Receipt Date: 20230306
  Transmission Date: 20230418
  Serious: Yes (Hospitalization)
  Sender: FDA-Public Use
  Company Number: TW-TOLMAR, INC.-22TW037878

PATIENT
  Age: 82 Year
  Sex: Male
  Weight: 69 kg

DRUGS (21)
  1. ELIGARD [Suspect]
     Active Substance: LEUPROLIDE ACETATE
     Indication: Prostate cancer
     Dosage: 22.5 MILLIGRAM, Q 3 MONTH
     Route: 058
     Dates: start: 20160907, end: 20170517
  2. ELIGARD [Suspect]
     Active Substance: LEUPROLIDE ACETATE
     Dosage: 22.5 MILLIGRAM, Q 3 MONTH
     Route: 058
     Dates: start: 20180418
  3. ENZALUTAMIDE [Suspect]
     Active Substance: ENZALUTAMIDE
     Indication: Prostate cancer
     Dosage: UNK, QD
     Route: 048
     Dates: start: 20160907, end: 20170517
  4. ENZALUTAMIDE [Suspect]
     Active Substance: ENZALUTAMIDE
     Dosage: UNK UNK, QD
     Route: 048
     Dates: start: 20180418
  5. DICYCLOMINE CO [Concomitant]
     Indication: Pollakiuria
     Dosage: UNK
     Route: 048
     Dates: start: 20150926
  6. DESMOPRESSIN [Concomitant]
     Active Substance: DESMOPRESSIN
     Indication: Nocturia
     Dosage: UNK
     Route: 048
     Dates: start: 20120207
  7. PROPIVERINE [Concomitant]
     Active Substance: PROPIVERINE
     Indication: Pollakiuria
     Dosage: UNK
     Route: 048
     Dates: start: 20120501
  8. LATANOPROST [Concomitant]
     Active Substance: LATANOPROST
     Indication: Glaucoma
     Dosage: UNK
     Route: 048
     Dates: start: 20140604
  9. BRIMONIDINE [Concomitant]
     Active Substance: BRIMONIDINE TARTRATE
     Indication: Glaucoma
     Dosage: UNK
     Route: 048
     Dates: start: 20140604
  10. CARBOMER [Concomitant]
     Active Substance: CARBOMER
     Indication: Dry eye
     Dosage: UNK
     Route: 048
     Dates: start: 20140917
  11. FLUOROMETHOLONE [Concomitant]
     Active Substance: FLUOROMETHOLONE
     Indication: Conjunctivitis
     Dosage: UNK
     Route: 048
     Dates: start: 20140604
  12. SULFAMETHOXAZOLE [Concomitant]
     Active Substance: SULFAMETHOXAZOLE
     Indication: Conjunctivitis
     Dosage: UNK
     Route: 048
     Dates: start: 20140604
  13. ETORICOXIB [Concomitant]
     Active Substance: ETORICOXIB
     Indication: Osteoarthritis
     Dosage: UNK
     Route: 048
     Dates: start: 20111025
  14. FURSULTIAMINE [Concomitant]
     Active Substance: FURSULTIAMINE
     Indication: Prophylaxis
     Dosage: UNK
     Route: 048
     Dates: start: 20130709
  15. BRINZOLAMIDE [Concomitant]
     Active Substance: BRINZOLAMIDE
     Indication: Glaucoma
     Dosage: UNK
     Route: 048
     Dates: start: 20140604
  16. ALINAMIN-F [FURSULTIAMINE HYDROCHLORIDE] [Concomitant]
     Indication: Prophylaxis
     Dosage: UNK
     Dates: start: 20160615
  17. MOXIFLOXACIN [Concomitant]
     Active Substance: MOXIFLOXACIN
     Indication: Prophylaxis
     Dosage: UNK
     Route: 048
     Dates: start: 20170114
  18. EXELDERM [SULCONAZOLE NITRATE] [Concomitant]
     Indication: Dermatophytosis of nail
     Dosage: UNK
     Route: 003
     Dates: start: 20160907
  19. OPTIVE FUSION [CARMELLOSE SODIUM;GLYCEROL] [Concomitant]
     Indication: Dry eye
     Dosage: UNK
     Route: 047
     Dates: start: 20161102
  20. SINOMIN SODIUM [Concomitant]
     Indication: Dry eye
     Dosage: UNK
     Route: 047
     Dates: start: 20161102
  21. TAFLOTAN S [Concomitant]
     Indication: Glaucoma
     Dosage: UNK
     Route: 047
     Dates: start: 20180426

REACTIONS (2)
  - Spinal compression fracture [Recovered/Resolved]
  - Fracture [Recovered/Resolved]

NARRATIVE: CASE EVENT DATE: 20221104
